FAERS Safety Report 25386469 (Version 1)
Quarter: 2025Q2

REPORT INFORMATION
  Report Type: Spontaneous
  Country: US (occurrence: None)
  Receive Date: 20250602
  Receipt Date: 20250602
  Transmission Date: 20250717
  Serious: Yes (Hospitalization)
  Sender: FDA-CTU
  Company Number: None

PATIENT
  Age: 67 Year
  Sex: Male
  Weight: 105 kg

DRUGS (1)
  1. ATORVASTATIN CALCIUM [Suspect]
     Active Substance: ATORVASTATIN CALCIUM
     Indication: Hyperlipidaemia
     Dosage: FREQUENCY : DAILY;?
     Route: 048
     Dates: start: 20241024

REACTIONS (5)
  - Adverse drug reaction [None]
  - Eczema [None]
  - Cellulitis [None]
  - Superinfection [None]
  - Sepsis [None]

NARRATIVE: CASE EVENT DATE: 20250311
